FAERS Safety Report 8173645-3 (Version None)
Quarter: 2012Q1

REPORT INFORMATION
  Report Type: 
  Country: None (occurrence: None)
  Receive Date: 20120229
  Receipt Date: 20120220
  Transmission Date: 20120608
  Serious: Yes (Hospitalization)
  Sender: FDA-Public Use
  Company Number: US-BAYER-2011-047208

PATIENT
  Age: 37 Year
  Sex: Female
  Weight: 129 kg

DRUGS (14)
  1. ALPHAGAN [Concomitant]
     Dosage: 0.1 %, UNK
     Route: 047
     Dates: start: 20061222
  2. METHYLPREDNISOLONE [Concomitant]
     Dosage: 4 MG, UNK
     Route: 048
     Dates: start: 20070305, end: 20070327
  3. DARVOCET [Concomitant]
  4. YAZ [Suspect]
     Indication: CONTRACEPTION
     Dosage: UNK
     Dates: start: 20060101, end: 20070101
  5. LEXAPRO [Concomitant]
     Dosage: 20 MG, UNK
     Route: 048
     Dates: start: 20070209, end: 20070327
  6. XANAX [Concomitant]
  7. MEDROL [Concomitant]
  8. AZITHROMYCIN [Concomitant]
     Dosage: 500 MG, UNK
     Dates: start: 20070313
  9. PRILOSEC [Concomitant]
     Dosage: UNK
     Route: 048
     Dates: start: 20070327
  10. TUSSIONEX [Concomitant]
     Dosage: ONE TEASPOON
     Dates: start: 20070308, end: 20070313
  11. PROPOXYPHENE HYDROCHLORIDE [Concomitant]
     Dosage: 650 MG, UNK
     Route: 048
     Dates: start: 20070322, end: 20070327
  12. YASMIN [Suspect]
     Indication: CONTRACEPTION
     Dosage: UNK
     Dates: start: 20060101, end: 20070101
  13. AMBIEN CR [Concomitant]
     Dosage: 12.5 MG, UNK
     Route: 048
     Dates: start: 20070110, end: 20070226
  14. ALPRAZOLAM [Concomitant]
     Dosage: 0.5 MG, UNK
     Route: 048
     Dates: start: 20070110, end: 20070327

REACTIONS (8)
  - DEEP VEIN THROMBOSIS [None]
  - INJURY [None]
  - PAIN [None]
  - FEAR [None]
  - EMOTIONAL DISTRESS [None]
  - ANXIETY [None]
  - PSYCHOLOGICAL TRAUMA [None]
  - PULMONARY EMBOLISM [None]
